FAERS Safety Report 7408580-9 (Version None)
Quarter: 2011Q2

REPORT INFORMATION
  Report Type: 
  Country: None (occurrence: None)
  Receive Date: 20110404
  Receipt Date: 20110323
  Transmission Date: 20111010
  Serious: Yes (Disabling)
  Sender: FDA-Public Use
  Company Number: 871097

PATIENT
  Age: 74 Year
  Sex: Male

DRUGS (1)
  1. GENTAMICIN SULFATE [Suspect]
     Indication: VERTIGO
     Dosage: 30 MG/ML, 0.5 ML, OTHER
     Route: 050

REACTIONS (4)
  - DIPLOPIA [None]
  - VISUAL ACUITY REDUCED [None]
  - HEAD TITUBATION [None]
  - GAZE PALSY [None]
